FAERS Safety Report 9896279 (Version 2)
Quarter: 2014Q1

REPORT INFORMATION
  Report Type: Spontaneous
  Country: US (occurrence: US)
  Receive Date: 20140213
  Receipt Date: 20140213
  Transmission Date: 20141002
  Serious: No
  Sender: FDA-Public Use
  Company Number: US-BRISTOL-MYERS SQUIBB COMPANY-18817759

PATIENT
  Age: 77 Year
  Sex: Female
  Weight: 74.83 kg

DRUGS (1)
  1. ORENCIA [Suspect]
     Indication: RHEUMATOID ARTHRITIS
     Dosage: LAST DOSE:5APR2013
     Route: 042
     Dates: start: 20130405

REACTIONS (7)
  - Dizziness [Unknown]
  - Nausea [Unknown]
  - Decreased appetite [Unknown]
  - Headache [Unknown]
  - Pain in extremity [Unknown]
  - Fatigue [Unknown]
  - Drug ineffective [Unknown]
